FAERS Safety Report 4535475-0 (Version None)
Quarter: 2004Q4

REPORT INFORMATION
  Report Type: 
  Country: None (occurrence: None)
  Receive Date: 20041222
  Receipt Date: 20041011
  Transmission Date: 20050328
  Serious: Yes (Hospitalization)
  Sender: FDA-Public Use
  Company Number: DE-MERCK-0410DEU00375

PATIENT
  Age: 43 Year
  Sex: Female

DRUGS (3)
  1. VIOXX [Suspect]
     Indication: SPINAL DISORDER
     Route: 048
     Dates: start: 20030428, end: 20040628
  2. OXYCODONE HYDROCHLORIDE [Concomitant]
     Indication: SCIATICA
     Route: 048
     Dates: start: 20030428
  3. AMITRIPTYLINE HYDROCHLORIDE [Concomitant]
     Indication: SCIATICA
     Route: 048
     Dates: start: 20030428, end: 20040628

REACTIONS (5)
  - ANGINA PECTORIS [None]
  - CERVICOBRACHIAL SYNDROME [None]
  - HYPERTENSION [None]
  - MYOCARDIAL INFARCTION [None]
  - PSEUDOANGINA [None]
